FAERS Safety Report 5417738-X (Version None)
Quarter: 2007Q3

REPORT INFORMATION
  Report Type: 
  Country: None (occurrence: None)
  Receive Date: 20070815
  Receipt Date: 20070815
  Transmission Date: 20080115
  Serious: Yes (Hospitalization)
  Sender: FDA-Public Use
  Company Number: None

PATIENT
  Sex: Female

DRUGS (2)
  1. ASPIRIN [Suspect]
     Indication: TOOTHACHE
     Dosage: 4 TABLETS X 1 DOSE PO (THERAPY DATES: PRIOR TO ADMISSION)
     Route: 048
  2. ALBUTEROL [Concomitant]

REACTIONS (5)
  - BURNING SENSATION [None]
  - CHEST PAIN [None]
  - DYSPNOEA [None]
  - EYE INFLAMMATION [None]
  - PRURITUS [None]
